FAERS Safety Report 25821495 (Version 1)
Quarter: 2025Q3

REPORT INFORMATION
  Report Type: Report from Study
  Country: US (occurrence: US)
  Receive Date: 20250919
  Receipt Date: 20250919
  Transmission Date: 20251021
  Serious: Yes (Hospitalization)
  Sender: GILEAD
  Company Number: US-GILEAD-2025-0729031

PATIENT
  Sex: Female

DRUGS (2)
  1. AZTREONAM LYSINE [Suspect]
     Active Substance: AZTREONAM LYSINE
     Indication: Cystic fibrosis lung
     Dosage: UNK, TID (1 VIAL VIA PARI ALTERA NEBULIZER 3 TIMES A DAY)
     Route: 055
     Dates: start: 20210201
  2. SYMDEKO [Suspect]
     Active Substance: IVACAFTOR\TEZACAFTOR
     Indication: Cystic fibrosis lung
     Dosage: UNK, BID (1 YELLOW TABLET BY MOUTH IN THE MORNING AND 1 LIGHT BLUE TABLET IN THE EVENING.)
     Route: 048
     Dates: start: 20250110

REACTIONS (1)
  - Illness [Unknown]
